FAERS Safety Report 9780050 (Version 2)
Quarter: 2013Q4

REPORT INFORMATION
  Report Type: Spontaneous
  Country: AU (occurrence: AU)
  Receive Date: 20131223
  Receipt Date: 20131226
  Transmission Date: 20140711
  Serious: Yes (Other)
  Sender: FDA-Public Use
  Company Number: AU-BAXTER-2013BAX050919

PATIENT
  Sex: Female

DRUGS (4)
  1. ENDOXAN CYCLOPHOSPHAMIDE 500MG (AS MONOHYDRATE) POWDER FOR INJECTION V [Suspect]
     Indication: PRODUCT USED FOR UNKNOWN INDICATION
     Dosage: FIRST COURSE
     Route: 042
  2. ENDOXAN CYCLOPHOSPHAMIDE 500MG (AS MONOHYDRATE) POWDER FOR INJECTION V [Suspect]
     Dosage: SECOND COURSE
     Route: 042
  3. ENDOXAN CYCLOPHOSPHAMIDE 500MG (AS MONOHYDRATE) POWDER FOR INJECTION V [Suspect]
     Dosage: THIRD COURSE
     Route: 042
  4. METHYLPREDNISOLONE [Concomitant]
     Indication: PRODUCT USED FOR UNKNOWN INDICATION
     Route: 065

REACTIONS (1)
  - Haemoptysis [Unknown]
